FAERS Safety Report 7525214-3 (Version None)
Quarter: 2011Q2

REPORT INFORMATION
  Report Type: 
  Country: None (occurrence: None)
  Receive Date: 20110606
  Receipt Date: 20110601
  Transmission Date: 20111010
  Serious: Yes (Life-Threatening, Hospitalization)
  Sender: FDA-Public Use
  Company Number: JP-ABBOTT-11P-087-0721263-00

PATIENT
  Sex: Female
  Weight: 48.5 kg

DRUGS (12)
  1. HUMIRA [Suspect]
     Indication: RHEUMATOID ARTHRITIS
     Route: 058
     Dates: start: 20101202, end: 20110407
  2. ASCORBIC ACID/CALCIUM PANTOTHENATE [Concomitant]
     Indication: VITAMIN C DEFICIENCY
     Route: 048
  3. SERTRALINE HYDROCHLORIDE [Concomitant]
     Indication: DEPRESSION
     Route: 048
     Dates: start: 20000701
  4. METHOTREXATE [Suspect]
     Indication: RHEUMATOID ARTHRITIS
     Dosage: 3X/WEEK: 4MG, 2MG, 2MG
     Route: 048
     Dates: start: 19950501, end: 20110404
  5. FLUNITRAZEPAM [Concomitant]
     Indication: DEPRESSION
     Route: 048
     Dates: start: 20000701, end: 20110324
  6. SODIUM RISEDRONATE HYDRATE [Concomitant]
     Indication: OSTEOPOROSIS
     Route: 048
     Dates: start: 20101111
  7. ASCORBIC ACID/CALCIUM PANTOTHENATE [Concomitant]
     Route: 048
     Dates: start: 20110421
  8. AMLODIPINE BESYLATE [Concomitant]
     Indication: HYPERTENSION
     Route: 048
  9. ETIZOLAM [Concomitant]
     Indication: DEPRESSION
     Route: 048
     Dates: start: 20000701
  10. FOLIC ACID [Concomitant]
     Indication: RHEUMATOID ARTHRITIS
     Route: 048
     Dates: start: 19950101, end: 20110406
  11. PREDNISOLONE [Concomitant]
     Indication: RHEUMATOID ARTHRITIS
     Route: 048
     Dates: start: 19950101, end: 20110421
  12. MOSAPRIDE CITRATE HYDRATE [Concomitant]
     Indication: GASTRITIS
     Route: 048

REACTIONS (1)
  - CHRONIC MYELOID LEUKAEMIA TRANSFORMATION [None]
